FAERS Safety Report 8709633 (Version 2)
Quarter: 2012Q4

REPORT INFORMATION
  Report Type: 
  Country: JP (occurrence: JP)
  Receive Date: 20120806
  Receipt Date: 20120919
  Transmission Date: 20130627
  Serious: Yes (Life-Threatening, Hospitalization)
  Sender: FDA-Public Use
  Company Number: JP-GLAXOSMITHKLINE-B0811736A

PATIENT
  Age: 74 Year
  Sex: Female
  Weight: 39 kg

DRUGS (5)
  1. ARIXTRA [Suspect]
     Indication: THROMBOSIS PROPHYLAXIS
     Dosage: 2.5MG Per day
     Route: 058
     Dates: start: 20120429, end: 20120503
  2. ADETPHOS [Concomitant]
     Route: 048
  3. METHYCOBAL [Concomitant]
     Route: 065
  4. ZYRTEC [Concomitant]
     Route: 048
  5. DICLOFENAC SODIUM [Concomitant]
     Route: 054

REACTIONS (6)
  - Post procedural haemorrhage [Recovered/Resolved]
  - Retroperitoneal haematoma [Recovered/Resolved]
  - Arterial haemorrhage [Unknown]
  - Abdominal distension [Unknown]
  - Pelvic haematoma [Unknown]
  - Abdominal pain [Unknown]
